FAERS Safety Report 9391329 (Version 1)
Quarter: 2013Q3

REPORT INFORMATION
  Report Type: Spontaneous
  Country: DE (occurrence: DE)
  Receive Date: 20130709
  Receipt Date: 20130709
  Transmission Date: 20140515
  Serious: Yes (Hospitalization)
  Sender: FDA-Public Use
  Company Number: DE-EISAI INC-E2007-01234-SPO-DE

PATIENT
  Age: 61 Year
  Sex: Female

DRUGS (2)
  1. FYCOMPA (PERAMPANEL) [Suspect]
     Indication: PARTIAL SEIZURES
     Dosage: UNKNOWN
     Route: 048
     Dates: start: 2013, end: 2013
  2. FYCOMPA (PERAMPANEL) [Suspect]
     Route: 048
     Dates: start: 2013, end: 20130628

REACTIONS (3)
  - Psychotic behaviour [Recovering/Resolving]
  - Persecutory delusion [Recovering/Resolving]
  - Aggression [Recovering/Resolving]
